FAERS Safety Report 10261872 (Version 1)
Quarter: 2014Q2

REPORT INFORMATION
  Report Type: Spontaneous
  Country: JP (occurrence: JP)
  Receive Date: 20140626
  Receipt Date: 20140626
  Transmission Date: 20141212
  Serious: Yes (Hospitalization)
  Sender: FDA-Public Use
  Company Number: PHHY2014JP076487

PATIENT
  Age: 85 Year
  Sex: Female

DRUGS (2)
  1. OMEPRAZOLE [Suspect]
     Route: 042
  2. SULPIRIDE [Suspect]

REACTIONS (5)
  - Long QT syndrome [Unknown]
  - Ventricular fibrillation [Unknown]
  - Respiratory arrest [Unknown]
  - Pallor [Unknown]
  - Ventricular tachycardia [Recovered/Resolved]
